FAERS Safety Report 10347016 (Version 2)
Quarter: 2016Q2

REPORT INFORMATION
  Report Type: Report from Study
  Country: BR (occurrence: BR)
  Receive Date: 20140729
  Receipt Date: 20160509
  Transmission Date: 20160815
  Serious: Yes (Other)
  Sender: FDA-Public Use
  Company Number: PHHY2014BR091622

PATIENT
  Sex: Female
  Weight: 84 kg

DRUGS (4)
  1. SANDOSTATIN LAR DEPOT [Suspect]
     Active Substance: OCTREOTIDE ACETATE
     Indication: ACROMEGALY
     Dosage: 30 MG, QMO, EVERY MONTH
     Route: 030
  2. HYDROCORTISONE. [Concomitant]
     Active Substance: HYDROCORTISONE
     Indication: PRODUCT USED FOR UNKNOWN INDICATION
     Dosage: 1 DF, QD
     Route: 065
  3. RIVOTRIL [Concomitant]
     Active Substance: CLONAZEPAM
     Indication: SLEEP DISORDER
     Dosage: 1 DF, QHS
     Route: 065
  4. CITALOPRAM [Concomitant]
     Active Substance: CITALOPRAM HYDROBROMIDE
     Indication: DEPRESSION
     Dosage: 2 DF, QD
     Route: 065

REACTIONS (9)
  - Arrhythmia [Unknown]
  - Weight increased [Not Recovered/Not Resolved]
  - Blood growth hormone increased [Unknown]
  - Eating disorder [Unknown]
  - Feeling abnormal [Unknown]
  - Thyroid mass [Unknown]
  - Pain in extremity [Not Recovered/Not Resolved]
  - Blood growth hormone decreased [Unknown]
  - Gait disturbance [Unknown]
